FAERS Safety Report 4353885-1 (Version None)
Quarter: 2004Q2

REPORT INFORMATION
  Report Type: 
  Country: None (occurrence: None)
  Receive Date: 20040430
  Receipt Date: 20040421
  Transmission Date: 20050107
  Serious: Yes (Life-Threatening)
  Sender: FDA-Public Use
  Company Number: USA-2004-0014800

PATIENT
  Age: 70 Year
  Sex: Male

DRUGS (5)
  1. CEFDITOREN PIVOXIL (SIMILAR TO NDA 21-222) (CEFDITOREN PIVOXIL) [Suspect]
     Indication: TOOTHACHE
     Dosage: 100 MG, ORAL
     Route: 048
     Dates: start: 20021125, end: 20021125
  2. VOLTAREN [Concomitant]
  3. FLOMOX (CEFCAPENE PIVOXIL HYDROCHLORIDE) [Concomitant]
  4. RINLAXER (CHLORPHENESIN CARBAMATE) [Concomitant]
  5. SOLON (SOFALCONE) [Concomitant]

REACTIONS (1)
  - ANAPHYLACTIC SHOCK [None]
